FAERS Safety Report 24593759 (Version 1)
Quarter: 2024Q4

REPORT INFORMATION
  Report Type: Spontaneous
  Country: US (occurrence: None)
  Receive Date: 20241108
  Receipt Date: 20241108
  Transmission Date: 20250115
  Serious: Yes (Other)
  Sender: Public
  Company Number: None

PATIENT
  Age: 77 Year
  Sex: Female
  Weight: 58.5 kg

DRUGS (8)
  1. PROPOFOL [Suspect]
     Active Substance: PROPOFOL
  2. LEXAPRO [Concomitant]
     Active Substance: ESCITALOPRAM OXALATE
  3. RESTASIS [Concomitant]
     Active Substance: CYCLOSPORINE
  4. TOCOPHEROL [Suspect]
     Active Substance: TOCOPHEROL
  5. CALCIUM [Concomitant]
     Active Substance: CALCIUM
  6. C [Concomitant]
  7. BORON [Concomitant]
     Active Substance: BORON
  8. D [Concomitant]

REACTIONS (4)
  - Injection site pain [None]
  - Injection site pain [None]
  - Feeling abnormal [None]
  - Fatigue [None]

NARRATIVE: CASE EVENT DATE: 20241104
